FAERS Safety Report 4761741-X (Version None)
Quarter: 2005Q3

REPORT INFORMATION
  Report Type: 
  Country: None (occurrence: None)
  Receive Date: 20050906
  Receipt Date: 20031106
  Transmission Date: 20060218
  Serious: Yes (Other)
  Sender: FDA-Public Use
  Company Number: KR-JNJFOC-20050806907

PATIENT
  Sex: Female

DRUGS (13)
  1. ULTRACET [Suspect]
     Route: 065
  2. CEFOTAXIME [Concomitant]
     Route: 065
  3. NETILCIN [Concomitant]
     Route: 065
  4. DICKNOL [Concomitant]
     Route: 065
  5. DICKNOL [Concomitant]
     Route: 065
  6. MOTIRASE [Concomitant]
     Route: 048
  7. CURAN [Concomitant]
     Route: 048
  8. ULGUT [Concomitant]
     Route: 048
  9. ALMAGATE [Concomitant]
     Dosage: 3 PACK
     Route: 048
  10. AIRTAL [Concomitant]
     Route: 048
  11. CEFACLOR [Concomitant]
     Route: 048
  12. AGIO GRAN [Concomitant]
     Dosage: 2 PACKS DAILY
     Route: 048
  13. CIMETIDINE [Concomitant]
     Route: 042

REACTIONS (2)
  - CHOLECYSTITIS [None]
  - ILEUS PARALYTIC [None]
